FAERS Safety Report 7427629-0 (Version None)
Quarter: 2011Q2

REPORT INFORMATION
  Report Type: 
  Country: None (occurrence: None)
  Receive Date: 20110421
  Receipt Date: 20110413
  Transmission Date: 20111010
  Serious: Yes (Other)
  Sender: FDA-Public Use
  Company Number: US-ASTRAZENECA-2009UW17741

PATIENT
  Age: 44 Year
  Sex: Female
  Weight: 77.1 kg

DRUGS (19)
  1. SEROQUEL [Suspect]
     Route: 048
     Dates: start: 20030101, end: 20080101
  2. ZYPREXA [Concomitant]
     Indication: BIPOLAR DISORDER
     Dosage: 10 MG AND 15 MG
     Dates: start: 20080101
  3. ABILIFY [Concomitant]
  4. PREVACID [Concomitant]
  5. ZEVIT [Concomitant]
     Dosage: 1 AM - 1 PM
  6. KLONOPIN [Concomitant]
     Dosage: 0.5 MG 1 - 2 TAB
  7. SEROQUEL [Suspect]
     Indication: BIPOLAR DISORDER
     Dosage: 100 TO 400 MG
     Route: 048
     Dates: start: 20030122
  8. SEROQUEL [Suspect]
     Indication: DEPRESSION
     Dosage: 100 TO 400 MG
     Route: 048
     Dates: start: 20030122
  9. ZYPREXA [Concomitant]
     Indication: POST-TRAUMATIC STRESS DISORDER
     Dosage: 10 MG AND 15 MG
     Dates: start: 20080101
  10. GEODON [Concomitant]
  11. PAXIL CR [Concomitant]
     Dosage: 12.5 TO 37.5 MG DAILY
     Route: 048
     Dates: start: 20030122
  12. RISPERDAL [Concomitant]
     Dosage: 1 MG TO 2 MG
     Dates: start: 20030827
  13. EPIVIR [Concomitant]
     Dosage: 150 MG
  14. SEROQUEL [Suspect]
     Indication: POST-TRAUMATIC STRESS DISORDER
     Dosage: 100 TO 400 MG
     Route: 048
     Dates: start: 20030122
  15. SEROQUEL [Suspect]
     Route: 048
     Dates: start: 20030101, end: 20080101
  16. DAPSONE [Concomitant]
     Dosage: 100 MG
  17. SEROQUEL [Suspect]
     Route: 048
     Dates: start: 20030101, end: 20080101
  18. ZYPREXA [Concomitant]
     Indication: DEPRESSION
     Dosage: 10 MG AND 15 MG
     Dates: start: 20080101
  19. KALETRA [Concomitant]
     Dosage: 3 TAB AM PM

REACTIONS (3)
  - OBESITY [None]
  - COMA [None]
  - TYPE 2 DIABETES MELLITUS [None]
